FAERS Safety Report 4300577-0 (Version None)
Quarter: 2004Q1

REPORT INFORMATION
  Report Type: 
  Country: None (occurrence: None)
  Receive Date: 20040218
  Receipt Date: 20040203
  Transmission Date: 20041129
  Serious: Yes (Hospitalization)
  Sender: FDA-Public Use
  Company Number: 2002IM000953

PATIENT
  Age: 49 Year
  Sex: Female
  Weight: 79.8331 kg

DRUGS (6)
  1. ACTIMMUNE [Suspect]
     Indication: HEPATIC CIRRHOSIS
     Dosage: 200 UG; TIW; SUBCUTANEOUS
     Route: 058
     Dates: start: 20011228, end: 20021125
  2. ACTIMMUNE [Suspect]
     Indication: HEPATITIS C
     Dosage: 200 UG; TIW; SUBCUTANEOUS
     Route: 058
     Dates: start: 20011228, end: 20021125
  3. SYNTHROID [Concomitant]
  4. TYLENOL (CAPLET) [Concomitant]
  5. XANAX [Concomitant]
  6. SONATA [Concomitant]

REACTIONS (4)
  - ASCITES [None]
  - CHOLECYSTITIS CHRONIC [None]
  - NAUSEA [None]
  - PYREXIA [None]
